FAERS Safety Report 8099636-9 (Version None)
Quarter: 2012Q1

REPORT INFORMATION
  Report Type: 
  Country: None (occurrence: None)
  Receive Date: 20120129
  Receipt Date: 20111007
  Transmission Date: 20120608
  Serious: No
  Sender: FDA-Public Use
  Company Number: US-ABBOTT-11P-163-0862132-00

PATIENT
  Age: 50 Year
  Sex: Male

DRUGS (5)
  1. HUMIRA [Suspect]
     Indication: CROHN'S DISEASE
     Dates: start: 20110503
  2. HUMIRA [Suspect]
     Dates: start: 20110503, end: 20110920
  3. BLOOD PRESSURE MEDICATIONS [Concomitant]
     Indication: PRODUCT USED FOR UNKNOWN INDICATION
  4. PAIN MEDICATION [Concomitant]
     Indication: BACK INJURY
  5. XANAX [Concomitant]
     Indication: PANIC ATTACK
     Route: 048

REACTIONS (5)
  - PANIC ATTACK [None]
  - FREQUENT BOWEL MOVEMENTS [None]
  - GASTROINTESTINAL INFLAMMATION [None]
  - HAEMATOCHEZIA [None]
  - CROHN'S DISEASE [None]
